FAERS Safety Report 25623406 (Version 1)
Quarter: 2025Q3

REPORT INFORMATION
  Report Type: Spontaneous
  Country: US (occurrence: None)
  Receive Date: 20250729
  Receipt Date: 20250729
  Transmission Date: 20251020
  Serious: No
  Sender: FDA-CTU
  Company Number: None

PATIENT
  Age: 90 Year
  Sex: Male
  Weight: 68.04 kg

DRUGS (10)
  1. BUSPIRONE HCL [Suspect]
     Active Substance: BUSPIRONE HYDROCHLORIDE
     Indication: Anxiety
     Dosage: 1 PILL ONCE DAILY BY MOUTH ?
     Route: 048
     Dates: start: 20250711, end: 20250713
  2. PANTOPRAZOLE SODIUM [Concomitant]
     Active Substance: PANTOPRAZOLE SODIUM
  3. NEBIVOLOL [Concomitant]
     Active Substance: NEBIVOLOL
  4. FELODIPINE [Concomitant]
     Active Substance: FELODIPINE
  5. VALSARTAN [Concomitant]
     Active Substance: VALSARTAN
  6. CLONIDINE [Concomitant]
     Active Substance: CLONIDINE
  7. FLAXSEED [Concomitant]
     Active Substance: FLAX SEED
  8. ASPIRIN [Concomitant]
     Active Substance: ASPIRIN
  9. HERBALS\SAW PALMETTO [Concomitant]
     Active Substance: HERBALS\SAW PALMETTO
  10. Ared [Concomitant]

REACTIONS (5)
  - Myalgia [None]
  - Dyspnoea [None]
  - Arthralgia [None]
  - Musculoskeletal stiffness [None]
  - Impaired quality of life [None]

NARRATIVE: CASE EVENT DATE: 20250711
